FAERS Safety Report 8904720 (Version 1)
Quarter: 2012Q4

REPORT INFORMATION
  Report Type: 
  Country: US (occurrence: US)
  Receive Date: 20121113
  Receipt Date: 20121113
  Transmission Date: 20130627
  Serious: No
  Sender: FDA-Public Use
  Company Number: US-GLAXOSMITHKLINE-A0980223A

PATIENT
  Age: 46 Year
  Sex: Male

DRUGS (7)
  1. COREG [Suspect]
     Indication: CARDIOMYOPATHY
     Dosage: 25MG Twice per day
     Route: 048
     Dates: start: 1996, end: 2012
  2. COREG CR [Suspect]
     Indication: CARDIOMYOPATHY
     Dosage: 80MG Per day
     Route: 048
     Dates: start: 2012
  3. DIOVAN [Concomitant]
  4. WARFARIN [Concomitant]
  5. L-ARGININE [Concomitant]
  6. L-CARNITINE [Concomitant]
  7. TORSEMIDE [Concomitant]

REACTIONS (7)
  - Heart rate decreased [Unknown]
  - Dizziness [Unknown]
  - Feeling abnormal [Unknown]
  - Fatigue [Unknown]
  - Hangover [Unknown]
  - Heart rate increased [Unknown]
  - Paraesthesia [Unknown]
